FAERS Safety Report 17506197 (Version 2)
Quarter: 2020Q1

REPORT INFORMATION
  Report Type: Spontaneous
  Country: US (occurrence: US)
  Receive Date: 20200305
  Receipt Date: 20200323
  Transmission Date: 20200409
  Serious: No
  Sender: FDA-Public Use
  Company Number: US-FRESENIUS KABI-FK202002250

PATIENT

DRUGS (1)
  1. PROTAMINE SULFATE INJECTION, USP [Suspect]
     Active Substance: PROTAMINE SULFATE
     Indication: PRODUCT USED FOR UNKNOWN INDICATION
     Route: 065

REACTIONS (1)
  - Blood pressure decreased [Unknown]
